FAERS Safety Report 24017023 (Version 1)
Quarter: 2024Q2

REPORT INFORMATION
  Report Type: Spontaneous
  Country: RO (occurrence: RO)
  Receive Date: 20240626
  Receipt Date: 20240626
  Transmission Date: 20240716
  Serious: Yes (Other)
  Sender: FDA-Public Use
  Company Number: RO-AstraZeneca-CH-00647663A

PATIENT
  Age: 57 Year
  Sex: Female

DRUGS (2)
  1. SOLIRIS [Suspect]
     Active Substance: ECULIZUMAB
     Indication: Atypical haemolytic uraemic syndrome
     Dosage: UNK
     Route: 065
     Dates: start: 20240122
  2. MEDROL [Concomitant]
     Active Substance: METHYLPREDNISOLONE
     Indication: Product used for unknown indication
     Dosage: 16 MILLIGRAM PER DAY
     Route: 065

REACTIONS (5)
  - Haptoglobin decreased [Unknown]
  - Blood creatinine abnormal [Unknown]
  - Haemoglobin abnormal [Unknown]
  - Platelet disorder [Unknown]
  - Blood lactate dehydrogenase abnormal [Unknown]
